FAERS Safety Report 11947256 (Version 1)
Quarter: 2016Q1

REPORT INFORMATION
  Report Type: Spontaneous
  Country: US (occurrence: US)
  Receive Date: 20160125
  Receipt Date: 20160125
  Transmission Date: 20160526
  Serious: No
  Sender: FDA-Public Use
  Company Number: US-JNJFOC-20151204906

PATIENT
  Age: 67 Year
  Sex: Female
  Weight: 67.13 kg

DRUGS (2)
  1. WOMENS ROGAINE UNSCENTED [Suspect]
     Active Substance: MINOXIDIL
     Route: 061
  2. WOMENS ROGAINE UNSCENTED [Suspect]
     Active Substance: MINOXIDIL
     Indication: ALOPECIA
     Dosage: HALF CAPFUL, ONCE A DAY, FROM A MONTH AGO
     Route: 061
     Dates: end: 20151203

REACTIONS (5)
  - Alopecia [Not Recovered/Not Resolved]
  - Product formulation issue [Unknown]
  - Product quality issue [Unknown]
  - Hair disorder [Not Recovered/Not Resolved]
  - Hair injury [Not Recovered/Not Resolved]
